FAERS Safety Report 17008809 (Version 1)
Quarter: 2019Q4

REPORT INFORMATION
  Report Type: Spontaneous
  Country: US (occurrence: US)
  Receive Date: 20191108
  Receipt Date: 20191108
  Transmission Date: 20200122
  Serious: No
  Sender: FDA-Public Use
  Company Number: US-SUNOVION-2019SUN004736

PATIENT
  Age: 2 Decade
  Sex: Female

DRUGS (1)
  1. LATUDA [Suspect]
     Active Substance: LURASIDONE HYDROCHLORIDE
     Indication: BIPOLAR DISORDER
     Dosage: 20 MG TO 80 MG (DEPENDING ON THE SEVERITY OF SYMP)
     Route: 048

REACTIONS (4)
  - Blood prolactin increased [Unknown]
  - Amenorrhoea [Recovered/Resolved]
  - Menstruation irregular [Not Recovered/Not Resolved]
  - Galactorrhoea [Not Recovered/Not Resolved]
